FAERS Safety Report 16160207 (Version 1)
Quarter: 2019Q2

REPORT INFORMATION
  Report Type: Spontaneous
  Country: US (occurrence: US)
  Receive Date: 20190404
  Receipt Date: 20190404
  Transmission Date: 20190711
  Serious: No
  Sender: FDA-Public Use
  Company Number: US-ACTELION-A-NJ2019-187865

PATIENT
  Sex: Female

DRUGS (11)
  1. MOBIC [Concomitant]
     Active Substance: MELOXICAM
  2. VENTOLIN [Concomitant]
     Active Substance: ALBUTEROL SULFATE
  3. BACLOFEN. [Concomitant]
     Active Substance: BACLOFEN
  4. FLUCONAZOLE. [Concomitant]
     Active Substance: FLUCONAZOLE
  5. OPSUMIT [Suspect]
     Active Substance: MACITENTAN
     Indication: PULMONARY ARTERIAL HYPERTENSION
     Dosage: 10 MG
     Route: 048
  6. METOPROLOL. [Concomitant]
     Active Substance: METOPROLOL
  7. METRONIDAZOLE. [Concomitant]
     Active Substance: METRONIDAZOLE
  8. AMOXICILLIN. [Concomitant]
     Active Substance: AMOXICILLIN
  9. FUROSEMIDE. [Concomitant]
     Active Substance: FUROSEMIDE
  10. PREDNISONE. [Concomitant]
     Active Substance: PREDNISONE
  11. TRAMADOL. [Concomitant]
     Active Substance: TRAMADOL

REACTIONS (3)
  - Neck pain [Unknown]
  - Musculoskeletal pain [Unknown]
  - Oropharyngeal pain [Unknown]
